FAERS Safety Report 13882261 (Version 2)
Quarter: 2017Q3

REPORT INFORMATION
  Report Type: Spontaneous
  Country: US (occurrence: US)
  Receive Date: 20170818
  Receipt Date: 20170929
  Transmission Date: 20171127
  Serious: Yes (Other)
  Sender: FDA-Public Use
  Company Number: US-AMGEN-USASP2017123728

PATIENT
  Age: 73 Year
  Sex: Female

DRUGS (1)
  1. NEULASTA [Suspect]
     Active Substance: PEGFILGRASTIM
     Indication: PRODUCT USED FOR UNKNOWN INDICATION
     Dosage: UNK
     Route: 065

REACTIONS (8)
  - Corneal abrasion [Not Recovered/Not Resolved]
  - Wrong technique in product usage process [Unknown]
  - Asthenia [Unknown]
  - Application site haemorrhage [Not Recovered/Not Resolved]
  - Madarosis [Unknown]
  - Thrombosis [Not Recovered/Not Resolved]
  - Central venous catheterisation [Unknown]
  - Application site bruise [Unknown]

NARRATIVE: CASE EVENT DATE: 201708
